FAERS Safety Report 9540070 (Version 1)
Quarter: 2013Q3

REPORT INFORMATION
  Report Type: Spontaneous
  Country: FR (occurrence: FR)
  Receive Date: 20130920
  Receipt Date: 20130920
  Transmission Date: 20140515
  Serious: Yes (Death, Life-Threatening)
  Sender: FDA-Public Use
  Company Number: FR-BAXTER-2013BAX036253

PATIENT
  Age: 35 Year
  Sex: Male

DRUGS (15)
  1. ENDOXAN 2000 MG, LYOPHILISAT POUR SOLUTION INJECTABLE [Suspect]
     Indication: CHEMOTHERAPY
     Route: 042
     Dates: start: 20071216, end: 20071217
  2. THYMOGLOBULINE [Concomitant]
     Indication: PRODUCT USED FOR UNKNOWN INDICATION
     Route: 065
     Dates: start: 20121216, end: 20121218
  3. TIENAM [Concomitant]
     Indication: PRODUCT USED FOR UNKNOWN INDICATION
     Route: 065
     Dates: start: 20071230
  4. CLAFORAN [Concomitant]
     Indication: INFECTION
     Route: 065
  5. GENTAMICIN [Concomitant]
     Indication: INFECTION
     Route: 065
     Dates: start: 20071217
  6. FORTUM [Concomitant]
     Indication: PRODUCT USED FOR UNKNOWN INDICATION
     Route: 065
     Dates: start: 20071225
  7. FORTUM [Concomitant]
     Route: 065
     Dates: start: 20080110
  8. AMIKLIN [Concomitant]
     Indication: PRODUCT USED FOR UNKNOWN INDICATION
     Route: 065
     Dates: start: 20071225
  9. VANCOMYCIN [Concomitant]
     Indication: INFECTION
     Route: 065
     Dates: start: 20071220
  10. VANCOMYCIN [Concomitant]
     Route: 065
     Dates: start: 20071225
  11. VANCOMYCIN [Concomitant]
     Route: 065
     Dates: start: 20071230
  12. CANCIDAS [Concomitant]
     Indication: ORAL CANDIDIASIS
     Route: 065
     Dates: start: 20071226
  13. VFEND [Concomitant]
     Indication: ASPERGILLOMA
     Route: 065
     Dates: start: 20071229
  14. VFEND [Concomitant]
     Indication: BRONCHOPULMONARY ASPERGILLOSIS
     Route: 065
     Dates: start: 20071230
  15. VFEND [Concomitant]
     Route: 065
     Dates: start: 20080110

REACTIONS (3)
  - Myocarditis [Fatal]
  - Ejection fraction decreased [Fatal]
  - Acute pulmonary oedema [Fatal]
